FAERS Safety Report 13251551 (Version 1)
Quarter: 2017Q1

REPORT INFORMATION
  Report Type: Spontaneous
  Country: US (occurrence: US)
  Receive Date: 20170220
  Receipt Date: 20170220
  Transmission Date: 20170428
  Serious: No
  Sender: FDA-Public Use
  Company Number: US-TEVA-640129USA

PATIENT
  Sex: Female

DRUGS (1)
  1. PROGESTERONE. [Suspect]
     Active Substance: PROGESTERONE
     Route: 048
     Dates: start: 201511

REACTIONS (3)
  - Throat irritation [Unknown]
  - Wrong technique in product usage process [Unknown]
  - Medication residue present [Unknown]

NARRATIVE: CASE EVENT DATE: 2016
